FAERS Safety Report 20339468 (Version 1)
Quarter: 2022Q1

REPORT INFORMATION
  Report Type: Spontaneous
  Country: US (occurrence: US)
  Receive Date: 20220117
  Receipt Date: 20220117
  Transmission Date: 20220423
  Serious: No
  Sender: FDA-Public Use
  Company Number: US-SA-SAC20220111000520

PATIENT
  Sex: Female
  Weight: 74.376 kg

DRUGS (5)
  1. AUBAGIO [Suspect]
     Active Substance: TERIFLUNOMIDE
     Indication: Multiple sclerosis
     Dosage: 14 MG,QD
     Route: 048
     Dates: start: 201808
  2. TAGRISSO [Suspect]
     Active Substance: OSIMERTINIB
  3. LEVOTHYROXINE [Concomitant]
     Active Substance: LEVOTHYROXINE
  4. CIMETIDINE [Concomitant]
     Active Substance: CIMETIDINE
  5. CARVEDILOL [Concomitant]
     Active Substance: CARVEDILOL

REACTIONS (3)
  - Cough [Unknown]
  - Hypersomnia [Unknown]
  - Product dose omission issue [Unknown]
